FAERS Safety Report 20649629 (Version 1)
Quarter: 2022Q1

REPORT INFORMATION
  Report Type: Spontaneous
  Country: US (occurrence: US)
  Receive Date: 20220329
  Receipt Date: 20220329
  Transmission Date: 20220423
  Serious: No
  Sender: FDA-Public Use
  Company Number: US-HISAMITSU-2021-US-021293

PATIENT
  Age: 49 Year
  Sex: Female
  Weight: 81.65 kg

DRUGS (2)
  1. SALONPAS PAIN RELIEF [Suspect]
     Active Substance: MENTHOL\METHYL SALICYLATE
     Indication: Analgesic therapy
     Dosage: 1 PATCH TO LOWER BACK
     Route: 061
     Dates: start: 20210926
  2. UNSPECIFIED INGREDIENT [Concomitant]
     Active Substance: UNSPECIFIED INGREDIENT

REACTIONS (2)
  - Drug ineffective [Unknown]
  - Intentional product misuse [Unknown]

NARRATIVE: CASE EVENT DATE: 20210926
